FAERS Safety Report 20790415 (Version 2)
Quarter: 2022Q2

REPORT INFORMATION
  Report Type: Spontaneous
  Country: US (occurrence: US)
  Receive Date: 20220505
  Receipt Date: 20220512
  Transmission Date: 20220721
  Serious: Yes (Death, Other)
  Sender: FDA-Public Use
  Company Number: US-PFIZER INC-202200639821

PATIENT
  Age: 34 Year
  Sex: Male

DRUGS (2)
  1. METRONIDAZOLE [Suspect]
     Active Substance: METRONIDAZOLE
     Indication: Acanthamoeba infection
     Dosage: UNK
     Route: 048
  2. FLUCYTOSINE [Suspect]
     Active Substance: FLUCYTOSINE
     Dosage: 1 G, 4X/DAY
     Route: 048

REACTIONS (1)
  - Death [Fatal]
